FAERS Safety Report 9502649 (Version 2)
Quarter: 2014Q1

REPORT INFORMATION
  Report Type: Spontaneous
  Country: IT (occurrence: IT)
  Receive Date: 20130906
  Receipt Date: 20140131
  Transmission Date: 20141002
  Serious: Yes (Other)
  Sender: FDA-Public Use
  Company Number: IT-ACCORD-019243

PATIENT
  Age: 46 Year
  Sex: Female
  Weight: 61 kg

DRUGS (6)
  1. ONDANSETRON [Concomitant]
     Indication: PROPHYLAXIS OF NAUSEA AND VOMITING
     Route: 042
     Dates: start: 20130201, end: 20130225
  2. SOLDESAM [Concomitant]
     Route: 042
     Dates: start: 20130201, end: 20130225
  3. LASIX FIALE [Concomitant]
     Route: 042
     Dates: start: 20130201, end: 20130225
  4. RANIDIL [Concomitant]
     Route: 042
     Dates: start: 20130201, end: 20130225
  5. CISPLATIN [Suspect]
     Indication: LUNG ADENOCARCINOMA
     Route: 042
     Dates: start: 20130201
  6. GEMCITABINE HYDROCHLORIDE [Suspect]
     Indication: LUNG ADENOCARCINOMA
     Route: 042
     Dates: start: 20130201

REACTIONS (8)
  - Dizziness [Unknown]
  - Tachycardia [Unknown]
  - Chest pain [Unknown]
  - Formication [Unknown]
  - Vomiting [Unknown]
  - Nausea [Unknown]
  - Pyrexia [Unknown]
  - Abdominal pain [Unknown]
